FAERS Safety Report 9364203 (Version 4)
Quarter: 2013Q3

REPORT INFORMATION
  Report Type: Spontaneous
  Country: US (occurrence: US)
  Receive Date: 20130624
  Receipt Date: 20130808
  Transmission Date: 20140515
  Serious: Yes (Hospitalization, Other)
  Sender: FDA-Public Use
  Company Number: US-009507513-1202USA00024

PATIENT
  Sex: Female

DRUGS (3)
  1. FOSAMAX [Suspect]
     Indication: OSTEOPOROSIS
     Dosage: 10 MG, UNK
     Route: 048
  2. FOSAMAX [Suspect]
     Dosage: 70 MG, UNK
     Route: 048
  3. ALENDRONATE SODIUM [Suspect]
     Dosage: 70 MG, UNK
     Route: 048

REACTIONS (28)
  - Intramedullary rod insertion [Unknown]
  - Fracture nonunion [Unknown]
  - Internal fixation of fracture [Unknown]
  - Device breakage [Unknown]
  - Removal of internal fixation [Unknown]
  - Femur fracture [Unknown]
  - Fall [Unknown]
  - Joint dislocation [Unknown]
  - Contusion [Unknown]
  - Fatigue [Unknown]
  - Soft tissue injury [Unknown]
  - Contusion [Unknown]
  - Osteoarthritis [Unknown]
  - Bursitis [Unknown]
  - Gait disturbance [Unknown]
  - Depression [Unknown]
  - Hypercholesterolaemia [Unknown]
  - Hypertension [Unknown]
  - Toe operation [Unknown]
  - Electrocardiogram abnormal [Unknown]
  - Osteoarthritis [Unknown]
  - Nasopharyngitis [Unknown]
  - Oropharyngeal pain [Unknown]
  - Blood potassium decreased [Unknown]
  - Glaucoma [Unknown]
  - Ligament sprain [Unknown]
  - Arthritis [Unknown]
  - Pain in extremity [Unknown]
